FAERS Safety Report 9197201 (Version 1)
Quarter: 2013Q1

REPORT INFORMATION
  Report Type: Report from Study
  Country: US (occurrence: US)
  Receive Date: 20130328
  Receipt Date: 20130328
  Transmission Date: 20140127
  Serious: Yes (Hospitalization, Other)
  Sender: FDA-Public Use
  Company Number: US-TEVA-384610USA

PATIENT
  Sex: Female

DRUGS (1)
  1. COPAXONE [Suspect]
     Indication: MULTIPLE SCLEROSIS
     Dates: start: 20100904, end: 20121201

REACTIONS (3)
  - Pulmonary embolism [Recovered/Resolved]
  - Pneumothorax [Recovered/Resolved]
  - Spinal cord operation [Unknown]
